FAERS Safety Report 10370278 (Version 1)
Quarter: 2014Q1

REPORT INFORMATION
  Report Type: Spontaneous
  Country: US (occurrence: None)
  Receive Date: 20140306
  Receipt Date: 20140306
  Transmission Date: 20141002
  Serious: Yes (Hospitalization, Other)
  Sender: FDA-Public Use
  Company Number: 163-21880-13071856

PATIENT
  Age: 68 Year
  Sex: Male

DRUGS (12)
  1. REVLIMID [Suspect]
     Indication: PLASMA CELL MYELOMA
     Dosage: 1 IN 2 D, PO
     Route: 048
     Dates: start: 20120626, end: 20130520
  2. VENLAFAXINE (UNKNOWN) [Concomitant]
  3. CARVEDILOL (UNKNOWN) [Concomitant]
  4. COUMADIN (WARFARIN SODIUM) (UNKNOWN) [Concomitant]
  5. DEXAMETHASONE (UNKNOWN) [Concomitant]
  6. DRONABINOL (UNKNOWN) [Concomitant]
  7. FENTANYL (POULTICE OR PATCH) [Concomitant]
  8. METHYLPHENIDATE HCL (METHYLPHENIDATE HYDROCHLORIDE) (UNKNOWN) [Concomitant]
  9. METOCLOPRAMIDE HCL (METOCLOPRAMIDE HYDROCHLORIDE) (UNKNOWN) [Concomitant]
  10. OMEPRAZOLE (UNKNOWN) [Concomitant]
  11. GLUCOSAMINE CHONDROITIN (GLUCOSAMINE W/CHONDROITIN SULFATE) (TABLETS) [Concomitant]
  12. ZOFRAN (ONDANSETRON HYDROCHLORIDE) (UNKNOWN) [Concomitant]

REACTIONS (4)
  - Pancytopenia [None]
  - Renal failure [None]
  - Plasma cell myeloma [None]
  - Hypertension [None]
